FAERS Safety Report 9562198 (Version 1)
Quarter: 2013Q3

REPORT INFORMATION
  Report Type: Spontaneous
  Country: IT (occurrence: None)
  Receive Date: 20130925
  Receipt Date: 20130925
  Transmission Date: 20140515
  Serious: Yes (Other)
  Sender: FDA-Public Use
  Company Number: 2013P1019372

PATIENT
  Sex: 0

DRUGS (1)
  1. ZONISAMIDE [Suspect]
     Indication: PARTIAL SEIZURES

REACTIONS (1)
  - Renal colic [None]
